FAERS Safety Report 9294151 (Version 3)
Quarter: 2014Q1

REPORT INFORMATION
  Report Type: Spontaneous
  Country: US (occurrence: US)
  Receive Date: 20130516
  Receipt Date: 20140303
  Transmission Date: 20141002
  Serious: No
  Sender: FDA-Public Use
  Company Number: US-009507513-1305USA009429

PATIENT
  Sex: Male

DRUGS (13)
  1. PROPECIA [Suspect]
     Indication: ALOPECIA
     Dosage: 1 MG, QD
     Route: 048
     Dates: start: 20080708, end: 20101112
  2. PROPECIA [Suspect]
     Indication: DIFFUSE ALOPECIA
  3. PROPECIA [Suspect]
     Indication: ANDROGENETIC ALOPECIA
  4. SOLODYN [Concomitant]
     Indication: ACNE
     Dosage: UNK
     Dates: start: 20060501, end: 20100201
  5. RHINOCORT AQUA [Concomitant]
     Indication: HYPERSENSITIVITY
     Dosage: UNK
     Dates: start: 20070518
  6. ZYRTEC [Concomitant]
     Indication: HYPERSENSITIVITY
     Dosage: UNK
     Dates: start: 20070518
  7. TRETINOIN [Concomitant]
     Indication: ACNE
     Dosage: UNK
     Dates: start: 20080822
  8. LUXIQ [Concomitant]
     Indication: ALOPECIA
     Dosage: QD TO BID PRN
     Route: 061
     Dates: start: 20080708
  9. BENZOYL PEROXIDE [Concomitant]
     Indication: ACNE
     Dosage: UNK
     Dates: start: 20080819
  10. RETIN-A [Concomitant]
     Indication: ACNE
     Dosage: UNK, HS
     Dates: start: 20080819
  11. MINOCYCLINE [Concomitant]
     Indication: ACNE
     Dosage: 75 MG, BID
     Route: 048
     Dates: start: 20080610
  12. DORYX [Concomitant]
     Indication: ACNE
     Dosage: 150 MG, QD
     Dates: start: 20081218
  13. ROGAINE [Concomitant]
     Indication: ALOPECIA
     Dosage: UNK
     Dates: start: 2008

REACTIONS (10)
  - Stress [Unknown]
  - Dyslexia [Unknown]
  - Nausea [Unknown]
  - Abdominal discomfort [Unknown]
  - Depression [Unknown]
  - Sexual dysfunction [Not Recovered/Not Resolved]
  - Erectile dysfunction [Unknown]
  - Gastrooesophageal reflux disease [Unknown]
  - Anxiety [Unknown]
  - Abdominal pain [Unknown]
